FAERS Safety Report 5552509-5 (Version None)
Quarter: 2007Q4

REPORT INFORMATION
  Report Type: 
  Country: None (occurrence: None)
  Receive Date: 20071205
  Receipt Date: 20071203
  Transmission Date: 20080405
  Serious: Yes (Other)
  Sender: FDA-Public Use
  Company Number: CHPA2007US11358

PATIENT
  Age: 22 Year
  Sex: Male
  Weight: 117.9 kg

DRUGS (2)
  1. NICODERM [Suspect]
     Indication: SMOKING CESSATION THERAPY
     Dosage: 21 MG, QD, TRANSDERMAL
     Route: 062
     Dates: start: 20071012, end: 20071019
  2. NICOTINE [Suspect]
     Indication: SMOKING CESSATION THERAPY
     Dosage: 14 MG, QD, TRANSDERMAL
     Route: 062
     Dates: start: 20071020, end: 20071020

REACTIONS (6)
  - BLOOD PRESSURE INCREASED [None]
  - DRUG TOXICITY [None]
  - OVERDOSE [None]
  - SIGHT DISABILITY [None]
  - TYPE 1 DIABETES MELLITUS [None]
  - VISION BLURRED [None]
